FAERS Safety Report 9009845 (Version 2)
Quarter: 2013Q1

REPORT INFORMATION
  Report Type: Spontaneous
  Country: JP (occurrence: JP)
  Receive Date: 20130111
  Receipt Date: 20130125
  Transmission Date: 20140127
  Serious: Yes (Hospitalization, Other)
  Sender: FDA-Public Use
  Company Number: PHHY2013JP002243

PATIENT
  Age: 16 Year
  Sex: Male

DRUGS (3)
  1. CICLOSPORIN [Suspect]
     Indication: APLASTIC ANAEMIA
     Dosage: UNK
  2. ANTITHYMOCYTE IMMUNOGLOBULIN (RABBIT) [Suspect]
     Indication: APLASTIC ANAEMIA
     Route: 041
  3. GRANULOCYTE COLONY STIMULATING FACTOR [Suspect]
     Indication: APLASTIC ANAEMIA

REACTIONS (8)
  - Osteonecrosis [Unknown]
  - Fungal endocarditis [Recovered/Resolved]
  - Herpes zoster [Unknown]
  - Pyrexia [Unknown]
  - Candida infection [Recovered/Resolved]
  - Cardiac murmur [Unknown]
  - Post procedural haemorrhage [Unknown]
  - No therapeutic response [Unknown]
